APPROVED DRUG PRODUCT: PAROXETINE HYDROCHLORIDE
Active Ingredient: PAROXETINE HYDROCHLORIDE
Strength: EQ 37.5MG BASE
Dosage Form/Route: TABLET, EXTENDED RELEASE;ORAL
Application: A217280 | Product #002 | TE Code: AB
Applicant: ALEMBIC PHARMACEUTICALS LTD
Approved: Sep 24, 2025 | RLD: No | RS: No | Type: RX